FAERS Safety Report 4763331-1 (Version None)
Quarter: 2005Q3

REPORT INFORMATION
  Report Type: 
  Country: None (occurrence: None)
  Receive Date: 20050902
  Receipt Date: 20050610
  Transmission Date: 20060218
  Serious: Yes (Hospitalization)
  Sender: FDA-Public Use
  Company Number: 2005BI011422

PATIENT
  Age: 53 Year
  Sex: Female

DRUGS (1)
  1. AVONEX [Suspect]
     Indication: MULTIPLE SCLEROSIS
     Dosage: IM
     Route: 030
     Dates: start: 19991001

REACTIONS (4)
  - BACTEROIDES INFECTION [None]
  - INJECTION SITE INFECTION [None]
  - MUSCLE ABSCESS [None]
  - STREPTOCOCCAL INFECTION [None]
